FAERS Safety Report 8041340-7 (Version None)
Quarter: 2012Q1

REPORT INFORMATION
  Report Type: 
  Country: None (occurrence: None)
  Receive Date: 20120112
  Receipt Date: 20120109
  Transmission Date: 20120608
  Serious: No
  Sender: FDA-Public Use
  Company Number: US-PFIZER INC-2012006373

PATIENT
  Sex: Female
  Weight: 90.703 kg

DRUGS (1)
  1. CELEBREX [Suspect]
     Indication: OSTEOARTHRITIS
     Dosage: 200 MG, 2X/DAY
     Route: 048
     Dates: end: 20120106

REACTIONS (4)
  - DRUG ADMINISTRATION ERROR [None]
  - MUSCULOSKELETAL STIFFNESS [None]
  - PAIN [None]
  - HYPOKINESIA [None]
